FAERS Safety Report 18662045 (Version 1)
Quarter: 2020Q4

REPORT INFORMATION
  Report Type: Spontaneous
  Country: MY (occurrence: MY)
  Receive Date: 20201224
  Receipt Date: 20201224
  Transmission Date: 20210114
  Serious: Yes (Other)
  Sender: FDA-Public Use
  Company Number: MY-NOVOPROD-776264

PATIENT
  Age: 49 Year
  Sex: Male

DRUGS (2)
  1. ACTRAPID [Suspect]
     Active Substance: INSULIN HUMAN
     Indication: DIABETES MELLITUS
     Dosage: 8 IU, TID
     Route: 058
  2. ISOPHANE INSULIN [Suspect]
     Active Substance: INSULIN NOS
     Indication: DIABETES MELLITUS
     Dosage: 8 IU, QD
     Route: 058

REACTIONS (2)
  - Rash [Recovered/Resolved]
  - Syncope [Recovered/Resolved]
